FAERS Safety Report 4921511-6 (Version None)
Quarter: 2006Q1

REPORT INFORMATION
  Report Type: 
  Country: None (occurrence: None)
  Receive Date: 20060222
  Receipt Date: 20060222
  Transmission Date: 20060701
  Serious: Yes (Other)
  Sender: FDA-Public Use
  Company Number: None

PATIENT
  Age: 69 Year
  Sex: Female
  Weight: 84.8226 kg

DRUGS (1)
  1. CLIMARA [Suspect]
     Dosage: 0.1 MG APPLY WEEKLY

REACTIONS (2)
  - RASH [None]
  - SKIN IRRITATION [None]
